FAERS Safety Report 8676211 (Version 3)
Quarter: 2013Q2

REPORT INFORMATION
  Report Type: Spontaneous
  Country: US (occurrence: US)
  Receive Date: 20120720
  Receipt Date: 20130521
  Transmission Date: 20140414
  Serious: Yes (Hospitalization)
  Sender: FDA-Public Use
  Company Number: US-B.I. PHARMACEUTICALS,INC./RIDGEFIELD-2012-BP-16083BP

PATIENT
  Age: 63 Year
  Sex: Female
  Weight: 72.57 kg

DRUGS (11)
  1. PRADAXA [Suspect]
     Indication: ATRIAL FIBRILLATION
     Dosage: 300 MG
     Dates: end: 201110
  2. CRESTOR [Concomitant]
     Dosage: 20 MG
  3. TEGRETOL-XR [Concomitant]
  4. TIKOSYN [Concomitant]
     Dosage: 500 NR
  5. PAXIL [Concomitant]
     Indication: DEPRESSION
     Dosage: 20 MG
  6. DILTIAZEM [Concomitant]
     Dosage: 120 MG
  7. MULTIVITAMIN [Concomitant]
  8. ANTIBIOTIC [Concomitant]
     Indication: URINARY TRACT INFECTION
  9. ANTIBIOTIC [Concomitant]
     Indication: PROPHYLAXIS
  10. MIRALAX [Concomitant]
  11. CALCIUM 600 WITH VITAMIN D [Concomitant]

REACTIONS (1)
  - Embolic stroke [Unknown]
